FAERS Safety Report 6549826-9 (Version None)
Quarter: 2010Q1

REPORT INFORMATION
  Report Type: 
  Country: None (occurrence: None)
  Receive Date: 20100125
  Receipt Date: 20100115
  Transmission Date: 20100710
  Serious: Yes (Other)
  Sender: FDA-Public Use
  Company Number: US-JNJCH-2010001374

PATIENT
  Sex: Female

DRUGS (2)
  1. ROLAIDS (UNSPECIFIED) [Suspect]
     Indication: ARTHRALGIA
     Dosage: TEXT:^QUITE A LOT^, UNSPECIFIED, DAILY
     Route: 048
  2. TYLENOL [Suspect]
     Indication: ARTHRALGIA
     Dosage: TEXT:^QUITE A LOT^, UNSPECIFIED, DAILY
     Route: 048

REACTIONS (3)
  - ACTIVITIES OF DAILY LIVING IMPAIRED [None]
  - FATIGUE [None]
  - HYPERSOMNIA [None]
